FAERS Safety Report 4288366-7 (Version None)
Quarter: 2004Q1

REPORT INFORMATION
  Report Type: 
  Country: None (occurrence: None)
  Receive Date: 20040209
  Receipt Date: 20030919
  Transmission Date: 20041129
  Serious: No
  Sender: FDA-Public Use
  Company Number: US-GLAXOSMITHKLINE-A0426597A

PATIENT
  Age: 31 Year
  Sex: Female

DRUGS (6)
  1. PAXIL [Suspect]
     Indication: DEPRESSION
     Dosage: 40MG PER DAY
     Route: 048
     Dates: start: 20010101, end: 20010101
  2. VALIUM [Concomitant]
  3. VICODIN [Concomitant]
  4. MULTI-VITAMIN [Concomitant]
  5. IRON [Concomitant]
  6. B12 [Concomitant]

REACTIONS (1)
  - DIARRHOEA [None]
